FAERS Safety Report 4959523-9 (Version None)
Quarter: 2006Q1

REPORT INFORMATION
  Report Type: 
  Country: None (occurrence: None)
  Receive Date: 20060331
  Receipt Date: 20060324
  Transmission Date: 20060701
  Serious: Yes (Hospitalization, Disabling, Other)
  Sender: FDA-Public Use
  Company Number: US-GLAXOSMITHKLINE-A0598980A

PATIENT
  Age: 24 Year
  Sex: Female

DRUGS (4)
  1. ADVAIR DISKUS 100/50 [Suspect]
     Indication: ASTHMA
     Dosage: 1PUFF TWICE PER DAY
     Route: 055
     Dates: start: 20041101
  2. FLONASE [Concomitant]
  3. ZYRTEC [Concomitant]
  4. ALBUTEROL [Concomitant]

REACTIONS (2)
  - CONVULSION [None]
  - EPILEPSY [None]
